FAERS Safety Report 10751465 (Version 1)
Quarter: 2015Q1

REPORT INFORMATION
  Report Type: Spontaneous
  Country: US (occurrence: None)
  Receive Date: 20150126
  Receipt Date: 20150126
  Transmission Date: 20150721
  Serious: Yes (Hospitalization)
  Sender: FDA-Public Use
  Company Number: A-NJ2013-91663

PATIENT
  Age: 71 Year
  Sex: Female

DRUGS (3)
  1. TRACLEER [Suspect]
     Active Substance: BOSENTAN\BOSENTAN MONOHYDRATE
     Indication: PULMONARY ARTERIAL HYPERTENSION
     Route: 048
  2. ASPIRIN (ACETYLSALICYLIC ACID) [Concomitant]
     Active Substance: ASPIRIN
  3. COUMADIN [Concomitant]
     Active Substance: WARFARIN SODIUM

REACTIONS (9)
  - Syncope [None]
  - Dyspnoea [None]
  - Palpitations [None]
  - Chest pain [None]
  - Dizziness [None]
  - Blood pressure decreased [None]
  - Swelling [None]
  - Condition aggravated [None]
  - Drug dose omission [None]

NARRATIVE: CASE EVENT DATE: 20131115
